FAERS Safety Report 7368157-0 (Version None)
Quarter: 2011Q1

REPORT INFORMATION
  Report Type: 
  Country: None (occurrence: None)
  Receive Date: 20110311
  Receipt Date: 20110302
  Transmission Date: 20110831
  Serious: Yes (Hospitalization)
  Sender: FDA-Public Use
  Company Number: VAL_00545_2011

PATIENT
  Age: 83 Year
  Sex: Male

DRUGS (6)
  1. ENALAPRIL [Concomitant]
  2. CARDYL [Concomitant]
  3. MINITRAN [Concomitant]
  4. CALCITRIOL [Suspect]
     Indication: BONE PAIN
     Dosage: 0.5 MG ORAL
     Route: 048
     Dates: start: 20100701, end: 20101029
  5. PLAVIX [Concomitant]
  6. ZANTAC [Concomitant]

REACTIONS (6)
  - POLLAKIURIA [None]
  - DISCOMFORT [None]
  - NAUSEA [None]
  - DYSURIA [None]
  - VOMITING [None]
  - HYPERCALCAEMIA [None]
